FAERS Safety Report 14325246 (Version 1)
Quarter: 2017Q4

REPORT INFORMATION
  Report Type: Spontaneous
  Country: DE (occurrence: DE)
  Receive Date: 20171226
  Receipt Date: 20171226
  Transmission Date: 20180321
  Serious: Yes (Hospitalization, Other)
  Sender: FDA-Public Use
  Company Number: PHHY2017DE193289

PATIENT
  Age: 65 Year
  Sex: Female

DRUGS (2)
  1. METHOTREXATE. [Suspect]
     Active Substance: METHOTREXATE
     Dosage: 15 MG, WEEKLY
     Route: 058
     Dates: start: 20061106
  2. XELJANZ [Suspect]
     Active Substance: TOFACITINIB CITRATE
     Indication: RHEUMATOID ARTHRITIS
     Dosage: 5 MG, DAILY
     Route: 048
     Dates: start: 20170727, end: 20170910

REACTIONS (6)
  - Colitis [Recovered/Resolved]
  - Restless legs syndrome [Recovered/Resolved]
  - Enteritis [Recovered/Resolved]
  - Iron deficiency [Recovered/Resolved]
  - Anaemia [Recovered/Resolved]
  - Intestinal perforation [Unknown]

NARRATIVE: CASE EVENT DATE: 201709
